FAERS Safety Report 9971435 (Version 2)
Quarter: 2014Q1

REPORT INFORMATION
  Report Type: Report from Study
  Country: US (occurrence: US)
  Receive Date: 20140306
  Receipt Date: 20140306
  Transmission Date: 20141002
  Serious: No
  Sender: FDA-Public Use
  Company Number: US-ABBVIE-13P-163-1116218-00

PATIENT
  Age: 32 Year
  Sex: Male
  Weight: 47.22 kg

DRUGS (4)
  1. HUMIRA [Suspect]
     Indication: CROHN^S DISEASE
     Route: 058
     Dates: start: 20130411, end: 20130411
  2. HUMIRA [Suspect]
     Route: 058
     Dates: start: 20130425, end: 20130425
  3. HUMIRA [Suspect]
     Route: 058
     Dates: end: 20130607
  4. RIFAMPIN [Concomitant]
     Indication: PRODUCT USED FOR UNKNOWN INDICATION

REACTIONS (3)
  - Device malfunction [Unknown]
  - Incorrect dose administered [Unknown]
  - Iritis [Recovering/Resolving]
